FAERS Safety Report 10235975 (Version 1)
Quarter: 2014Q2

REPORT INFORMATION
  Report Type: Spontaneous
  Country: US (occurrence: None)
  Receive Date: 20140612
  Receipt Date: 20140612
  Transmission Date: 20141212
  Serious: No
  Sender: FDA-Public Use
  Company Number: None

PATIENT
  Age: 24 Year
  Sex: Female

DRUGS (3)
  1. TECFIDERA [Suspect]
     Indication: MULTIPLE SCLEROSIS
     Dosage: 1 PILL BID ORAL
     Route: 048
     Dates: start: 20140310
  2. SOLUMEDROL [Concomitant]
  3. MULTIVITAMINS [Concomitant]

REACTIONS (2)
  - Alopecia [None]
  - Acne [None]
